FAERS Safety Report 9247371 (Version 4)
Quarter: 2013Q4

REPORT INFORMATION
  Report Type: Spontaneous
  Country: US (occurrence: US)
  Receive Date: 20130423
  Receipt Date: 20131002
  Transmission Date: 20140711
  Serious: Yes (Other)
  Sender: FDA-Public Use
  Company Number: US-JNJFOC-20130411614

PATIENT
  Age: 70 Year
  Sex: Male
  Weight: 76.4 kg

DRUGS (10)
  1. REMICADE [Suspect]
     Indication: CROHN^S DISEASE
     Dosage: 5-10 MG/KG UNTIL STOPPED, THE PATIENT HAD RECEIVED APPROXIMATELY 16 NUMBER OF INFUSIONS
     Route: 042
     Dates: end: 20081215
  2. REMICADE [Suspect]
     Indication: CROHN^S DISEASE
     Route: 042
     Dates: start: 20000430, end: 20041217
  3. AZATHIOPRINE [Suspect]
     Indication: PRODUCT USED FOR UNKNOWN INDICATION
     Route: 065
     Dates: start: 20000510
  4. PENTASA [Suspect]
     Indication: CROHN^S DISEASE
     Route: 065
     Dates: start: 19931213, end: 20000428
  5. NEXIUM [Suspect]
     Indication: PRODUCT USED FOR UNKNOWN INDICATION
     Route: 065
  6. PREDNISONE [Concomitant]
     Indication: CROHN^S DISEASE
     Dosage: QUICK TAPERS, MULTIPLE COURSES OVER MANY YEARS AS HE WAS DIAGNOSED WITH CROHN^S IN 1967
     Route: 065
     Dates: start: 20000424, end: 20000515
  7. PROSCAR [Concomitant]
     Route: 065
  8. FLOMAX [Concomitant]
     Route: 065
  9. MULTIVITAMINS [Concomitant]
     Dosage: MULTIPLE TYPES DAILY
     Route: 065
  10. IMODIUM [Concomitant]
     Route: 065

REACTIONS (10)
  - Squamous cell carcinoma [Unknown]
  - Chronic myeloid leukaemia [Recovering/Resolving]
  - Benign prostatic hyperplasia [Not Recovered/Not Resolved]
  - Renal failure chronic [Not Recovered/Not Resolved]
  - Pylorus dilatation [Unknown]
  - Gastrooesophageal reflux disease [Not Recovered/Not Resolved]
  - Tonsillectomy [Unknown]
  - Rhinitis [Not Recovered/Not Resolved]
  - Chronic sinusitis [Not Recovered/Not Resolved]
  - Nausea [Unknown]
